FAERS Safety Report 4332100-9 (Version None)
Quarter: 2004Q2

REPORT INFORMATION
  Report Type: 
  Country: None (occurrence: None)
  Receive Date: 20040402
  Receipt Date: 20040402
  Transmission Date: 20050107
  Serious: Yes (Hospitalization)
  Sender: FDA-Public Use
  Company Number: None

PATIENT
  Age: 65 Year
  Sex: Male
  Weight: 81.6475 kg

DRUGS (2)
  1. NUBAIN [Suspect]
  2. FENTANYL [Suspect]

REACTIONS (1)
  - DRUG WITHDRAWAL SYNDROME [None]
